FAERS Safety Report 4891676-3 (Version None)
Quarter: 2005Q4

REPORT INFORMATION
  Report Type: 
  Country: None (occurrence: None)
  Receive Date: 20051220
  Receipt Date: 20051103
  Transmission Date: 20060501
  Serious: Yes (Other)
  Sender: FDA-Public Use
  Company Number: 423573

PATIENT
  Age: 50 Year
  Sex: Male

DRUGS (3)
  1. BONIVA [Suspect]
     Indication: OSTEOPENIA
     Dosage: 150MG 1 PER MONTH ORAL
     Route: 048
     Dates: start: 20051029
  2. FOLIC ACID [Concomitant]
  3. EPOGEN [Concomitant]

REACTIONS (7)
  - ARTHRALGIA [None]
  - CHILLS [None]
  - DEFAECATION URGENCY [None]
  - HEADACHE [None]
  - NAUSEA [None]
  - PYREXIA [None]
  - STOMACH DISCOMFORT [None]
